FAERS Safety Report 5168997-2 (Version None)
Quarter: 2006Q4

REPORT INFORMATION
  Report Type: 
  Country: None (occurrence: None)
  Receive Date: 20061211
  Receipt Date: 20031226
  Transmission Date: 20070319
  Serious: Yes (Hospitalization)
  Sender: FDA-Public Use
  Company Number: JP-AVENTIS-200311627JP

PATIENT
  Age: 54 Year
  Sex: Male
  Weight: 80 kg

DRUGS (11)
  1. ARAVA [Suspect]
     Indication: RHEUMATOID ARTHRITIS
     Route: 048
     Dates: start: 20031212, end: 20031214
  2. ARAVA [Suspect]
     Route: 048
     Dates: start: 20031215, end: 20031225
  3. QUESTRAN [Suspect]
     Indication: DRUG DETOXIFICATION
     Route: 048
     Dates: start: 20031227, end: 20031231
  4. QUESTRAN [Suspect]
     Route: 048
     Dates: start: 20030101, end: 20030101
  5. PREDNISOLONE [Concomitant]
     Indication: RHEUMATOID ARTHRITIS
     Route: 048
     Dates: start: 20030704, end: 20031226
  6. LOXONIN                            /00890701/ [Concomitant]
     Indication: RHEUMATOID ARTHRITIS
     Route: 048
     Dates: start: 20020913, end: 20031226
  7. MUCOSTA [Concomitant]
     Indication: ULCER
     Route: 048
     Dates: start: 20020913, end: 20031226
  8. RHEUMATREX                         /00113801/ [Concomitant]
     Indication: RHEUMATOID ARTHRITIS
     Route: 048
     Dates: start: 20030705, end: 20031207
  9. METHOTREXATE [Concomitant]
     Dosage: DOSE: 8MG/WEEK
     Route: 048
     Dates: start: 20030705, end: 20031207
  10. METHOTREXATE [Concomitant]
     Dosage: DOSE: 6MG/WEEK
     Route: 048
     Dates: start: 20021001, end: 20030629
  11. PARIET [Concomitant]
     Route: 048
     Dates: end: 20040106

REACTIONS (8)
  - ALANINE AMINOTRANSFERASE INCREASED [None]
  - ASPARTATE AMINOTRANSFERASE INCREASED [None]
  - BLOOD ALKALINE PHOSPHATASE INCREASED [None]
  - BLOOD LACTATE DEHYDROGENASE INCREASED [None]
  - GAMMA-GLUTAMYLTRANSFERASE INCREASED [None]
  - PRURITUS [None]
  - PYREXIA [None]
  - RASH [None]
